FAERS Safety Report 8960945 (Version 2)
Quarter: 2013Q2

REPORT INFORMATION
  Report Type: Report from Study
  Country: KR (occurrence: KR)
  Receive Date: 20121212
  Receipt Date: 20130626
  Transmission Date: 20140414
  Serious: Yes (Hospitalization)
  Sender: FDA-Public Use
  Company Number: KR-UCBSA-072581

PATIENT
  Age: 76 Year
  Sex: Female
  Weight: 64 kg

DRUGS (15)
  1. CERTOLIZUMAB PEGOL [Suspect]
     Indication: RHEUMATOID ARTHRITIS
     Dosage: NUMBER OF DOSES RECEIVED: 14
     Route: 058
     Dates: start: 20111026
  2. CERTOLIZUMAB PEGOL [Suspect]
     Indication: RHEUMATOID ARTHRITIS
     Dosage: NUMBER OF DOSES RECEIVED: 26
     Route: 058
     Dates: start: 20100929, end: 20110926
  3. METHYLPREDNISOLONE [Concomitant]
     Indication: RHEUMATOID ARTHRITIS
     Route: 048
     Dates: start: 20091230
  4. FOLIC ACID [Concomitant]
     Indication: PROPHYLAXIS
     Route: 048
     Dates: start: 20090728
  5. CELECOXIB [Concomitant]
     Indication: RHEUMATOID ARTHRITIS
     Route: 048
     Dates: start: 20090904
  6. TEPRENONE [Concomitant]
     Indication: PROPHYLAXIS AGAINST GASTROINTESTINAL ULCER
     Route: 048
     Dates: start: 20100323
  7. METHOTREXATE [Concomitant]
     Indication: RHEUMATOID ARTHRITIS
     Route: 048
     Dates: start: 20090904
  8. SARPOGRELATE [Concomitant]
     Indication: HYPERTENSION
     Route: 048
     Dates: start: 20080729
  9. TELMISARTAN [Concomitant]
     Indication: HYPERTENSION
     Route: 048
     Dates: start: 20111122
  10. AMLODIPINE [Concomitant]
     Indication: HYPERTENSION
     Route: 048
     Dates: start: 20111122
  11. HYDROCHLOROTHIAZIDE [Concomitant]
     Indication: HYPERTENSION
     Route: 048
     Dates: start: 20111122
  12. PARAMACET SEMI [Concomitant]
     Indication: RHEUMATOID ARTHRITIS
     Dosage: 1 TABLET TWICE A DAY
     Route: 048
     Dates: start: 20120416
  13. PARAMACET SEMI [Concomitant]
     Indication: RHEUMATOID ARTHRITIS
     Dosage: 1 TABLET ONCE DAILY
     Route: 048
     Dates: start: 20090728, end: 20120415
  14. CALTEO TAB 40 [Concomitant]
     Indication: OSTEOPOROSIS
     Dosage: 1 TABLET DAILY
     Route: 048
     Dates: start: 20120316
  15. OPALMON [Concomitant]
     Indication: RHEUMATOID ARTHRITIS
     Dosage: 1 TABLET TWICE DAILY
     Route: 048
     Dates: start: 20121109

REACTIONS (1)
  - Joint swelling [Not Recovered/Not Resolved]
